FAERS Safety Report 5828535-5 (Version None)
Quarter: 2008Q3

REPORT INFORMATION
  Report Type: 
  Country: None (occurrence: None)
  Receive Date: 20080731
  Receipt Date: 20080717
  Transmission Date: 20090109
  Serious: Yes (Hospitalization)
  Sender: FDA-Public Use
  Company Number: JP-GENENTECH-261974

PATIENT
  Sex: Male

DRUGS (3)
  1. AVASTIN [Suspect]
     Indication: COLON CANCER
     Dosage: 5 MG/KG, Q2W
     Route: 041
  2. IRINOTECAN HCL [Suspect]
     Indication: COLON CANCER
     Route: 041
  3. FLUOROURACIL [Suspect]
     Indication: COLON CANCER

REACTIONS (1)
  - DECUBITUS ULCER [None]
